FAERS Safety Report 5196020-2 (Version None)
Quarter: 2006Q4

REPORT INFORMATION
  Report Type: 
  Country: None (occurrence: None)
  Receive Date: 20061227
  Receipt Date: 20061214
  Transmission Date: 20070319
  Serious: Yes (Hospitalization)
  Sender: FDA-Public Use
  Company Number: 8020424

PATIENT
  Sex: Female

DRUGS (4)
  1. KEPPRA [Suspect]
     Indication: EPILEPSY
     Dosage: 750 MG 2/D
  2. PHENOBARBITAL TAB [Concomitant]
  3. VALPROATE SODIUM [Concomitant]
  4. LAMOTRIGINE [Concomitant]

REACTIONS (9)
  - BLEPHARITIS [None]
  - BLEPHAROSPASM [None]
  - BLINDNESS [None]
  - CORNEAL DISORDER [None]
  - DRY EYE [None]
  - HEADACHE [None]
  - HYPERSENSITIVITY [None]
  - LACRIMATION DECREASED [None]
  - OCULAR HYPERAEMIA [None]
